FAERS Safety Report 19821288 (Version 2)
Quarter: 2021Q4

REPORT INFORMATION
  Report Type: Report from Study
  Country: PL (occurrence: PL)
  Receive Date: 20210913
  Receipt Date: 20211014
  Transmission Date: 20220303
  Serious: Yes (Hospitalization)
  Sender: FDA-Public Use
  Company Number: PL-ROCHE-2895367

PATIENT
  Age: 74 Year
  Sex: Female
  Weight: 47 kg

DRUGS (22)
  1. ATEZOLIZUMAB [Suspect]
     Active Substance: ATEZOLIZUMAB
     Indication: Bile duct cancer
     Dosage: START DATE OF MOST RECENT DOSE (1200 MG) OF ATEZOLIZUMAB PRIOR TO AE/SAE: 22/JUL/2021
     Route: 042
     Dates: start: 20210521
  2. BEVACIZUMAB [Suspect]
     Active Substance: BEVACIZUMAB
     Indication: Bile duct cancer
     Dosage: START DATE OF MOST RECENT DOSE OF BLINDED BEVACIZUMAB PRIOR TO AE/SAE: 22/JUL/2021
     Route: 042
     Dates: start: 20210521
  3. CISPLATIN [Suspect]
     Active Substance: CISPLATIN
     Indication: Bile duct cancer
     Dosage: START DATE OF MOST RECENT DOSE (36.5 MG) OF CISPLATIN PRIOR TO AE/SAE : 08/JUL/2021
     Route: 042
     Dates: start: 20210521
  4. GEMCITABINE [Suspect]
     Active Substance: GEMCITABINE
     Indication: Bile duct cancer
     Dosage: START DATE OF MOST RECENT DOSE (1460 MG) OF GEMCITABINE PRIOR TO AE/SAE: 05/AUG/2021
     Route: 042
     Dates: start: 20210521
  5. METOPROLOL [Concomitant]
     Active Substance: METOPROLOL
     Indication: Hypertension
  6. ASPIRIN [Concomitant]
     Active Substance: ASPIRIN
     Indication: Prophylaxis
  7. PROKIT [Concomitant]
     Indication: Abdominal pain
     Dates: start: 20210514
  8. ACETAMINOPHEN\TRAMADOL HYDROCHLORIDE [Concomitant]
     Active Substance: ACETAMINOPHEN\TRAMADOL HYDROCHLORIDE
     Indication: Abdominal pain
     Dates: start: 20210514
  9. PREDNISONE [Concomitant]
     Active Substance: PREDNISONE
     Route: 048
     Dates: start: 20210812, end: 20210922
  10. HEPA-MERZ [Concomitant]
     Dates: start: 20210812
  11. HEPARIN [Concomitant]
     Active Substance: HEPARIN SODIUM
     Indication: Prophylaxis
     Dates: start: 202106
  12. DEXTROSE [Concomitant]
     Active Substance: DEXTROSE
     Dates: start: 20210829, end: 20210908
  13. NATRIUM CHLORATUM [Concomitant]
     Dates: start: 20210829, end: 20210908
  14. CALCIUM CHLORIDE\MAGNESIUM CHLORIDE\POTASSIUM CHLORIDE\SODIUM ACETATE\ [Concomitant]
     Active Substance: CALCIUM CHLORIDE\MAGNESIUM CHLORIDE\POTASSIUM CHLORIDE\SODIUM ACETATE\SODIUM CHLORIDE\SODIUM CITRATE
     Dates: start: 20210829, end: 20210908
  15. METRONIDAZOLE [Concomitant]
     Active Substance: METRONIDAZOLE
     Dates: start: 20210829, end: 20210908
  16. DROTAVERINE [Concomitant]
     Active Substance: DROTAVERINE
     Dates: start: 20210829, end: 20210908
  17. DICLOFENAC [Concomitant]
     Active Substance: DICLOFENAC
     Dates: start: 20210829, end: 20210908
  18. NITRENDIPINE [Concomitant]
     Active Substance: NITRENDIPINE
     Indication: Hypertension
     Dates: start: 20210829, end: 20210908
  19. HUMAN RED BLOOD CELL [Concomitant]
     Active Substance: HUMAN RED BLOOD CELL
     Indication: Anaemia
     Dates: start: 20210907, end: 20210907
  20. MONOVER (POLAND) [Concomitant]
     Indication: Anaemia
     Dates: start: 20210907, end: 20210907
  21. ESOMEPRAZOLE. [Concomitant]
     Active Substance: ESOMEPRAZOLE MAGNESIUM
     Indication: Prophylaxis
     Dates: start: 20210819
  22. BUPRENORPHINE [Concomitant]
     Active Substance: BUPRENORPHINE
     Indication: Abdominal pain
     Dates: start: 20210923

REACTIONS (1)
  - Cholestasis [Recovering/Resolving]

NARRATIVE: CASE EVENT DATE: 20210812
